FAERS Safety Report 14716087 (Version 4)
Quarter: 2018Q2

REPORT INFORMATION
  Report Type: Report from Study
  Country: CN (occurrence: CN)
  Receive Date: 20180404
  Receipt Date: 20180507
  Transmission Date: 20180711
  Serious: Yes (Death, Hospitalization)
  Sender: FDA-Public Use
  Company Number: CN-AMGEN-CHNCT2018045077

PATIENT
  Age: 19 Year
  Sex: Male
  Weight: 58 kg

DRUGS (20)
  1. IMIPENEM AND CILASTATIN SODIUM [Concomitant]
     Active Substance: CILASTATIN SODIUM\IMIPENEM
     Dosage: 1 G, Q8H
     Route: 042
     Dates: start: 20180317, end: 20180403
  2. TORASEMIDE [Concomitant]
     Active Substance: TORSEMIDE
     Dosage: 20 MG, UNK
     Route: 042
     Dates: start: 20180318, end: 20180319
  3. DEXAMETHASONE SODIUM PHOSPHATE. [Concomitant]
     Active Substance: DEXAMETHASONE SODIUM PHOSPHATE
     Dosage: 2.5- 20 MG, UNK
     Dates: start: 20180317, end: 20180404
  4. POTASSIUM CHLORIDE. [Concomitant]
     Active Substance: POTASSIUM CHLORIDE
     Dosage: 10 ML, UNK
     Route: 042
     Dates: start: 20180318, end: 20180326
  5. INSULIN HUMAN [Concomitant]
     Active Substance: INSULIN HUMAN
     Dosage: 6 UNK, UNK
     Route: 050
     Dates: start: 20180327, end: 20180327
  6. INSULIN INJECTION [Concomitant]
     Active Substance: INSULIN NOS
     Dosage: 8 - 12 UNK, UNK
     Route: 050
     Dates: start: 20180328, end: 20180404
  7. FUROSEMIDE. [Concomitant]
     Active Substance: FUROSEMIDE
     Dosage: 20 MG, UNK
     Route: 042
     Dates: start: 20180319, end: 20180404
  8. BLINATUMOMAB [Suspect]
     Active Substance: BLINATUMOMAB
     Dosage: UNK
     Route: 042
     Dates: start: 20180403
  9. PANTOPRAZOLE SODIUM. [Concomitant]
     Active Substance: PANTOPRAZOLE SODIUM
     Dosage: 40 MG, UNK
     Route: 042
     Dates: start: 20180318, end: 20180326
  10. MOXIFLOXACIN HYDROCHLORIDE. [Concomitant]
     Active Substance: MOXIFLOXACIN HYDROCHLORIDE
     Dosage: 0.4 G, UNK
     Route: 048
     Dates: start: 20180323, end: 20180405
  11. VORICONAZOLE. [Concomitant]
     Active Substance: VORICONAZOLE
     Dosage: 200 MG, Q12H AND 0.2 G UNK
     Route: 048
     Dates: start: 20180317, end: 20180405
  12. SODIUM BICARBONATE. [Concomitant]
     Active Substance: SODIUM BICARBONATE
     Dosage: 100 ML, UNK
     Route: 042
     Dates: start: 20180318, end: 20180326
  13. FILGRASTIM [Concomitant]
     Active Substance: FILGRASTIM
     Dosage: 300 MUG, QD
     Route: 042
     Dates: start: 20180326, end: 20180405
  14. DEXAMETHASONE. [Concomitant]
     Active Substance: DEXAMETHASONE
     Dosage: 20 MG, UNK
     Dates: start: 20180323, end: 20180403
  15. AMIKACIN SULFATE. [Concomitant]
     Active Substance: AMIKACIN SULFATE
     Dosage: 0.4 G, QD
     Route: 042
     Dates: start: 20180317, end: 20180403
  16. CYTARABINE. [Concomitant]
     Active Substance: CYTARABINE
     Dosage: 0.05 G, UNK
     Route: 037
     Dates: start: 20180322, end: 20180322
  17. METHOTREXATE. [Concomitant]
     Active Substance: METHOTREXATE
     Dosage: 10 MG, UNK
     Route: 037
     Dates: start: 20180322, end: 20180322
  18. BLINATUMOMAB [Suspect]
     Active Substance: BLINATUMOMAB
     Indication: B PRECURSOR TYPE ACUTE LEUKAEMIA
     Dosage: 1 UNK, QD
     Route: 042
     Dates: start: 20180323, end: 20180329
  19. CEFOPERAZONE SODIUM AND TAZOBACTAM SODIUM [Concomitant]
     Active Substance: CEFOPERAZONE\TAZOBACTAM SODIUM
     Dosage: 2.25 -5.5 G, UNK
     Route: 042
     Dates: start: 20180316, end: 20180323
  20. ETAMSYLATE [Concomitant]
     Active Substance: ETHAMSYLATE
     Dosage: 0.5- 1 G, QD
     Route: 042
     Dates: start: 20180316, end: 20180405

REACTIONS (2)
  - Neutropenic infection [Not Recovered/Not Resolved]
  - Acute lymphocytic leukaemia [Fatal]

NARRATIVE: CASE EVENT DATE: 20180329
